FAERS Safety Report 9431869 (Version 1)
Quarter: 2013Q3

REPORT INFORMATION
  Report Type: Spontaneous
  Country: US (occurrence: None)
  Receive Date: 20130726
  Receipt Date: 20130726
  Transmission Date: 20140515
  Serious: Yes (Other)
  Sender: FDA-Public Use
  Company Number: AUR-APL-2013-06201

PATIENT
  Age: 65 Year
  Sex: Female

DRUGS (5)
  1. GABAPENTIN (GABAPENTIN) [Suspect]
     Indication: PAIN
  2. OXYCODONE (OXYCODONE) [Suspect]
     Indication: PAIN
  3. TRAMADOL HCL [Suspect]
     Indication: PAIN
  4. AMITRIPTYLINE [Suspect]
     Indication: PAIN
  5. HYDROCODONE (HYDROCODONE) [Suspect]
     Indication: PAIN

REACTIONS (7)
  - Inadequate analgesia [None]
  - Adverse drug reaction [None]
  - Feeling abnormal [None]
  - Feeling of despair [None]
  - Insomnia [None]
  - Crying [None]
  - Neuropathy peripheral [None]
